FAERS Safety Report 18811907 (Version 1)
Quarter: 2021Q1

REPORT INFORMATION
  Report Type: Spontaneous
  Country: FR (occurrence: FR)
  Receive Date: 20210129
  Receipt Date: 20210129
  Transmission Date: 20210419
  Serious: Yes (Other)
  Sender: FDA-Public Use
  Company Number: FR-ALLERGAN-2104193US

PATIENT
  Sex: Female

DRUGS (1)
  1. BOTOX [Suspect]
     Active Substance: ONABOTULINUMTOXINA
     Indication: PARALYSIS
     Dosage: 200 UNITS, SINGLE
     Route: 030
     Dates: start: 20201125, end: 20201125

REACTIONS (1)
  - Botulism [Recovering/Resolving]

NARRATIVE: CASE EVENT DATE: 20201125
